FAERS Safety Report 5317165-X (Version None)
Quarter: 2007Q2

REPORT INFORMATION
  Report Type: 
  Country: None (occurrence: None)
  Receive Date: 20070504
  Receipt Date: 20070423
  Transmission Date: 20071010
  Serious: Yes (Hospitalization, Other)
  Sender: FDA-Public Use
  Company Number: JP-PFIZER INC-2006148115

PATIENT
  Sex: Female
  Weight: 45 kg

DRUGS (1)
  1. FLUCAM [Suspect]
     Indication: ARTHRALGIA
     Dosage: FREQ:FREQUENCY: PRN
     Route: 048
     Dates: start: 19960101, end: 20060818

REACTIONS (1)
  - COLITIS ULCERATIVE [None]
